FAERS Safety Report 9786621 (Version 1)
Quarter: 2013Q4

REPORT INFORMATION
  Report Type: Spontaneous
  Country: US (occurrence: US)
  Receive Date: 20131227
  Receipt Date: 20131227
  Transmission Date: 20140711
  Serious: Yes (Hospitalization)
  Sender: FDA-Public Use
  Company Number: US-B.I. PHARMACEUTICALS,INC./RIDGEFIELD-2013-BI-43582BP

PATIENT
  Age: 59 Year
  Sex: Female

DRUGS (1)
  1. MIRAPEX [Suspect]
     Indication: RESTLESS LEGS SYNDROME
     Dosage: 1 MG
     Route: 048
     Dates: start: 2009

REACTIONS (9)
  - Pneumonia aspiration [Recovered/Resolved]
  - Rheumatoid arthritis [Recovered/Resolved]
  - Renal failure acute [Recovered/Resolved]
  - Depression [Recovered/Resolved]
  - Sepsis [Recovered/Resolved]
  - Hyperkalaemia [Recovered/Resolved]
  - Clostridium difficile infection [Recovered/Resolved]
  - Rhabdomyolysis [Recovered/Resolved]
  - Drug ineffective [Recovered/Resolved]
